FAERS Safety Report 4883320-6 (Version None)
Quarter: 2006Q1

REPORT INFORMATION
  Report Type: 
  Country: None (occurrence: None)
  Receive Date: 20060118
  Receipt Date: 20060116
  Transmission Date: 20060701
  Serious: Yes (Hospitalization, Other)
  Sender: FDA-Public Use
  Company Number: US-GLAXOSMITHKLINE-A0589413A

PATIENT
  Age: 19 Year
  Sex: Male

DRUGS (3)
  1. LAMICTAL [Suspect]
     Indication: EPILEPSY
     Dosage: 100MG UNKNOWN
     Route: 048
     Dates: start: 20010101, end: 20031201
  2. IMIPRAMINE [Concomitant]
  3. ZONISAMIDE [Concomitant]

REACTIONS (3)
  - MENTAL STATUS CHANGES [None]
  - RASH [None]
  - SCHIZOPHRENIA [None]
